FAERS Safety Report 11193392 (Version 1)
Quarter: 2015Q2

REPORT INFORMATION
  Report Type: Report from Study
  Country: GB (occurrence: ET)
  Receive Date: 20150616
  Receipt Date: 20150616
  Transmission Date: 20150821
  Serious: Yes (Death)
  Sender: FDA-Public Use
  Company Number: GB-MYLANLABS-2015M1018870

PATIENT

DRUGS (1)
  1. PREDNISOLONE. [Suspect]
     Active Substance: PREDNISOLONE
     Indication: TYPE 2 LEPRA REACTION
     Dosage: (SELF MEDICATING)
     Route: 048

REACTIONS (5)
  - Night sweats [Fatal]
  - Pleurisy [Fatal]
  - Weight decreased [Fatal]
  - Cough [Fatal]
  - Mycobacterium test positive [Fatal]
